FAERS Safety Report 6528974-3 (Version None)
Quarter: 2009Q4

REPORT INFORMATION
  Report Type: 
  Country: None (occurrence: None)
  Receive Date: 20091224
  Receipt Date: 20091218
  Transmission Date: 20100525
  Serious: Yes (Death, Life-Threatening, Disabling)
  Sender: FDA-Public Use
  Company Number: A-JP2009-24754

PATIENT
  Age: 77 Year
  Sex: Female
  Weight: 35 kg

DRUGS (10)
  1. TRACLEER [Suspect]
     Indication: PULMONARY ARTERIAL HYPERTENSION
     Dosage: 62.5 MG, BID, ORAL
     Route: 048
  2. FUROSEMIDE [Concomitant]
  3. FLUNITRAZEPAM (FLUNITRAZEPAM) [Concomitant]
  4. METILDIGOXIN (METILDIGOXIN) [Concomitant]
  5. LANSOPRAZOLE [Concomitant]
  6. CLARITHROMYCIN [Concomitant]
  7. SPIRONOLACTONE [Concomitant]
  8. THEOPHYLLINE [Concomitant]
  9. AMBROXOL (AMOBROXOL HYDROCHLORIDE) [Concomitant]
  10. OXYGEN (OXYGEN) [Concomitant]

REACTIONS (9)
  - CARDIAC FAILURE [None]
  - DRUG EFFECT PROLONGED [None]
  - HEPATIC FAILURE [None]
  - INTERNATIONAL NORMALISED RATIO INCREASED [None]
  - LUNG INFECTION [None]
  - MULTI-ORGAN FAILURE [None]
  - PATHOGEN RESISTANCE [None]
  - PLATELET COUNT DECREASED [None]
  - RESPIRATORY FAILURE [None]
